FAERS Safety Report 20983910 (Version 1)
Quarter: 2022Q2

REPORT INFORMATION
  Report Type: Spontaneous
  Country: AT (occurrence: AT)
  Receive Date: 20220621
  Receipt Date: 20220621
  Transmission Date: 20220720
  Serious: Yes (Other)
  Sender: FDA-Public Use
  Company Number: AT-CELLTRION HEALTHCARE HUNGARY KFT-2022AT007118

PATIENT
  Age: 58 Year

DRUGS (3)
  1. POMALIDOMIDE [Suspect]
     Active Substance: POMALIDOMIDE
     Indication: Prophylaxis
     Dosage: PER DAY
     Route: 065
     Dates: start: 201712, end: 20210420
  2. LENALIDOMIDE [Concomitant]
     Active Substance: LENALIDOMIDE
     Indication: Prophylaxis
  3. BORTEZOMIB [Concomitant]
     Active Substance: BORTEZOMIB
     Indication: Prophylaxis

REACTIONS (2)
  - Hypogammaglobulinaemia [Unknown]
  - Vaccination failure [Unknown]
